FAERS Safety Report 7589006-1 (Version None)
Quarter: 2011Q3

REPORT INFORMATION
  Report Type: 
  Country: None (occurrence: None)
  Receive Date: 20110705
  Receipt Date: 20110621
  Transmission Date: 20111222
  Serious: Yes (Death, Hospitalization)
  Sender: FDA-Public Use
  Company Number: US-JNJFOC-20110610696

PATIENT
  Age: 23 Year
  Sex: Female

DRUGS (3)
  1. REMICADE [Suspect]
     Indication: COLITIS ULCERATIVE
     Route: 042
     Dates: start: 20110101
  2. PREDNISONE [Concomitant]
     Indication: COLITIS ULCERATIVE
     Route: 048
  3. ASACOL [Concomitant]
     Indication: COLITIS ULCERATIVE
     Route: 048

REACTIONS (2)
  - PULMONARY EMBOLISM [None]
  - HOSPITALISATION [None]
